FAERS Safety Report 4407734-3 (Version None)
Quarter: 2004Q3

REPORT INFORMATION
  Report Type: 
  Country: None (occurrence: None)
  Receive Date: 20040721
  Receipt Date: 20040709
  Transmission Date: 20050211
  Serious: Yes (Hospitalization)
  Sender: FDA-Public Use
  Company Number: US-JNJFOC-20040502732

PATIENT
  Age: 94 Year
  Sex: Female
  Weight: 40.8237 kg

DRUGS (4)
  1. DURAGESIC [Suspect]
     Indication: PAIN
     Dosage: 25 UG/HR, 1 IN 72 HOUR, TRANSDERMAL
     Route: 062
     Dates: start: 20040510
  2. LEXEPRO (ALL OTHER THERAPEUTIC PRODUCTS) [Concomitant]
  3. PLAVIX [Concomitant]
  4. SEROQUEL [Concomitant]

REACTIONS (4)
  - APTYALISM [None]
  - CONSTIPATION [None]
  - DRY MOUTH [None]
  - DYSPHAGIA [None]
